FAERS Safety Report 22015179 (Version 1)
Quarter: 2023Q1

REPORT INFORMATION
  Report Type: Report from Study
  Country: CN (occurrence: CN)
  Receive Date: 20230221
  Receipt Date: 20230221
  Transmission Date: 20230417
  Serious: Yes (Hospitalization)
  Sender: FDA-Public Use
  Company Number: CN-MYLANLABS-PV202200044822

PATIENT
  Age: 23 Year
  Sex: Female
  Weight: 67 kg

DRUGS (8)
  1. SILDENAFIL CITRATE [Suspect]
     Active Substance: SILDENAFIL CITRATE
     Indication: Pulmonary hypertension
     Dosage: 20 MG, 3X/DAY
     Route: 065
     Dates: start: 20220524
  2. Gui pi [Concomitant]
     Indication: Nutritional supplementation
     Dosage: UNK
     Route: 048
     Dates: start: 20220729
  3. FERROUS SUCCINATE [Concomitant]
     Active Substance: FERROUS SUCCINATE
     Indication: Blood disorder
     Dosage: 0.3 G, 1X/DAY
     Route: 048
     Dates: start: 20220722, end: 20220728
  4. FERROUS SUCCINATE [Concomitant]
     Active Substance: FERROUS SUCCINATE
     Dosage: 0.2 G, 2X/DAY
     Route: 048
     Dates: start: 20220729
  5. DESOGESTREL\ETHINYL ESTRADIOL [Concomitant]
     Active Substance: DESOGESTREL\ETHINYL ESTRADIOL
     Indication: Haemostasis
     Dosage: 1 TABLET, 3X/DAY
     Route: 048
     Dates: start: 20220729, end: 20220731
  6. CEFIXIME [Concomitant]
     Active Substance: CEFIXIME
     Indication: Anti-infective therapy
     Dosage: 100 MILLIGRAM, BID (100 MG, 2X/DAY)
     Route: 065
     Dates: start: 20220729, end: 20220802
  7. OXYTOCIN [Concomitant]
     Active Substance: OXYTOCIN
     Indication: Haemostasis
     Dosage: UNK (ROA: IV DRIP)
     Route: 042
  8. IRON SUCROSE [Concomitant]
     Active Substance: IRON SUCROSE
     Indication: Blood disorder
     Dosage: UNK
     Route: 065

REACTIONS (2)
  - Right ventricular failure [Not Recovered/Not Resolved]
  - Haemoptysis [Recovered/Resolved]

NARRATIVE: CASE EVENT DATE: 20220729
